FAERS Safety Report 19172017 (Version 1)
Quarter: 2021Q2

REPORT INFORMATION
  Report Type: Spontaneous
  Country: BR (occurrence: BR)
  Receive Date: 20210423
  Receipt Date: 20210423
  Transmission Date: 20210717
  Serious: Yes (Hospitalization, Other)
  Sender: FDA-Public Use
  Company Number: BR-ORGANON-O2104BRA001424

PATIENT
  Sex: Female
  Weight: 55 kg

DRUGS (3)
  1. VYTORIN [Suspect]
     Active Substance: EZETIMIBE\SIMVASTATIN
     Indication: BLOOD CHOLESTEROL ABNORMAL
     Dosage: 1 TABLET ? 10/20 MG, ONCE DAILY
     Route: 048
     Dates: start: 2013, end: 20210323
  2. EXFORGE HCT [Concomitant]
     Active Substance: AMLODIPINE BESYLATE\HYDROCHLOROTHIAZIDE\VALSARTAN
     Dosage: VALSARTAN 160MG + HYDROCHLOROTHIAZIDE 12.5MG + AMLODIPINE BESYLATE 5MG
  3. ATENOLOL. [Concomitant]
     Active Substance: ATENOLOL
     Dosage: UNK

REACTIONS (4)
  - Blood pressure abnormal [Unknown]
  - Anaemia [Recovered/Resolved]
  - Arrhythmia [Recovered/Resolved]
  - Cholecystectomy [Unknown]

NARRATIVE: CASE EVENT DATE: 202103
